FAERS Safety Report 20741504 (Version 9)
Quarter: 2022Q4

REPORT INFORMATION
  Report Type: Report from Study
  Country: IT (occurrence: IT)
  Receive Date: 20220422
  Receipt Date: 20221214
  Transmission Date: 20230113
  Serious: Yes (Life-Threatening, Hospitalization)
  Sender: FDA-Public Use
  Company Number: IT-BRISTOL-MYERS SQUIBB COMPANY-BMS-2022-026295

PATIENT
  Age: 62 Year
  Sex: Male
  Weight: 76 kg

DRUGS (7)
  1. IPILIMUMAB [Suspect]
     Active Substance: IPILIMUMAB
     Indication: Colorectal cancer metastatic
     Dosage: PATIENT RECEIVED ONE DOSE ONLY (MOST RECENT 28-JAN-2022)?ACTION TAKEN: DRUG INTERRUPTED
     Route: 042
     Dates: start: 20220128
  2. TRAMETINIB [Suspect]
     Active Substance: TRAMETINIB
     Indication: Colorectal cancer metastatic
     Dosage: 28-JAN-2022 TILL 10-FEB-2022?PATIENT RECEIVED MOST RECENT DOSE OF 1 MG ON 14-FEB-2022.?ACTION TAKEN:
     Route: 048
     Dates: start: 20220128
  3. TRAMETINIB [Suspect]
     Active Substance: TRAMETINIB
     Dosage: 11-FEB-2022 TILL 14-FEB-2022?ACTION TAKEN: DRUG INTERRUPTED
     Route: 048
     Dates: start: 20220211
  4. ACETAMINOPHEN [Concomitant]
     Active Substance: ACETAMINOPHEN
     Indication: Product used for unknown indication
     Route: 048
     Dates: start: 20220210, end: 20220217
  5. HYDROCORTISONE [Concomitant]
     Active Substance: HYDROCORTISONE
     Indication: Rash
     Dosage: DOSE: 2 UNITS NOS
     Route: 061
     Dates: start: 20220204, end: 20220217
  6. FLUTICASONE PROPIONATE [Concomitant]
     Active Substance: FLUTICASONE PROPIONATE
     Indication: Rash
     Dosage: DOSE = 1 UNIT NOS
     Route: 061
     Dates: start: 20220204, end: 20220217
  7. DOXYCYCLINE [Concomitant]
     Active Substance: DOXYCYCLINE
     Indication: Rash
     Route: 048
     Dates: start: 20220207, end: 20220318

REACTIONS (4)
  - Aspartate aminotransferase increased [Recovered/Resolved]
  - Alanine aminotransferase increased [Recovered/Resolved]
  - Eyelid ptosis [Recovered/Resolved]
  - Hepatic function abnormal [Recovered/Resolved]

NARRATIVE: CASE EVENT DATE: 20220216
